FAERS Safety Report 4763366-9 (Version None)
Quarter: 2005Q3

REPORT INFORMATION
  Report Type: 
  Country: None (occurrence: None)
  Receive Date: 20050826
  Receipt Date: 20050202
  Transmission Date: 20060218
  Serious: Yes (Death)
  Sender: FDA-Public Use
  Company Number: USA-2004-0015854

PATIENT
  Age: 38 Year
  Sex: Male
  Weight: 104 kg

DRUGS (6)
  1. OXYCONTIN [Suspect]
     Dosage: 40 MG, TID
     Route: 048
  2. SOMA [Suspect]
     Dosage: 350 MG, QID
     Route: 048
  3. LORTAB [Concomitant]
  4. FLEXERIL [Concomitant]
  5. MEPROBAMATE [Concomitant]
  6. ATIVAN [Concomitant]

REACTIONS (2)
  - ACCIDENTAL OVERDOSE [None]
  - MULTIPLE DRUG OVERDOSE [None]
